FAERS Safety Report 14224449 (Version 2)
Quarter: 2018Q3

REPORT INFORMATION
  Report Type: Report from Study
  Country: DE (occurrence: DE)
  Receive Date: 20171127
  Receipt Date: 20180919
  Transmission Date: 20181010
  Serious: Yes (Hospitalization)
  Sender: FDA-Public Use
  Company Number: DE-ROCHE-2013916

PATIENT
  Age: 76 Year
  Sex: Male
  Weight: 89 kg

DRUGS (10)
  1. OBINUTUZUMAB. [Suspect]
     Active Substance: OBINUTUZUMAB
     Indication: CHRONIC LYMPHOCYTIC LEUKAEMIA
     Dosage: DATE OF LAST DOSE PRIOR TO SAE: 09/OCT/2017. ?AS PER PROTOCOL, PATIENT RECEIVES OBINUTUZUMAB ON DAY
     Route: 042
     Dates: start: 20151012
  2. RAMIPRIL. [Concomitant]
     Active Substance: RAMIPRIL
     Route: 048
     Dates: start: 20151001
  3. VITAMIN B12 [Concomitant]
     Active Substance: CYANOCOBALAMIN
     Route: 042
     Dates: start: 20151001
  4. LAXOBERAL [Concomitant]
     Active Substance: SODIUM PICOSULFATE
     Route: 048
     Dates: start: 20180917
  5. BISOPROLOL [Concomitant]
     Active Substance: BISOPROLOL
     Route: 048
     Dates: start: 20151009
  6. GABAPENTIN. [Concomitant]
     Active Substance: GABAPENTIN
     Route: 048
     Dates: start: 20171227
  7. HYDROMORPHONE [Concomitant]
     Active Substance: HYDROMORPHONE
     Route: 048
     Dates: start: 20180917
  8. IDELALISIB [Suspect]
     Active Substance: IDELALISIB
     Indication: CHRONIC LYMPHOCYTIC LEUKAEMIA
     Dosage: DATE OF LAST DOSE PRIOR TO SAE: 22/MAR/2016?AS PER PROTOCOL, PATIENT RECEIVES IDELALISIB ON D1?84.
     Route: 048
     Dates: start: 20151109
  9. BENDAMUSTINE [Suspect]
     Active Substance: BENDAMUSTINE
     Indication: CHRONIC LYMPHOCYTIC LEUKAEMIA
     Dosage: DATE OF LAST DOSE PRIOR TO SAE: 01/SEP/2015?AS PER PROTOCOL, PATIENT RECEIVES BENDAMUSTINE ON DAY 1
     Route: 042
     Dates: start: 20150831
  10. COTRIM FORTE [Concomitant]
     Active Substance: SULFAMETHOXAZOLE\TRIMETHOPRIM
     Route: 048
     Dates: start: 20151012

REACTIONS (2)
  - Actinic keratosis [Recovered/Resolved]
  - Squamous cell carcinoma [Recovered/Resolved]

NARRATIVE: CASE EVENT DATE: 20171023
